FAERS Safety Report 12730413 (Version 2)
Quarter: 2016Q3

REPORT INFORMATION
  Report Type: Report from Study
  Country: CA (occurrence: CA)
  Receive Date: 20160909
  Receipt Date: 20160919
  Transmission Date: 20161109
  Serious: Yes (Hospitalization)
  Sender: FDA-Public Use
  Company Number: CA-HLSUS-2016-CA-000438

PATIENT
  Age: 65 Year
  Sex: Male

DRUGS (1)
  1. CLOZARIL [Suspect]
     Active Substance: CLOZAPINE
     Route: 048
     Dates: start: 19950511

REACTIONS (5)
  - Fall [Unknown]
  - Pneumonia [Unknown]
  - Ear injury [None]
  - Coma [Unknown]
  - Laceration [None]

NARRATIVE: CASE EVENT DATE: 20160826
